FAERS Safety Report 18890237 (Version 1)
Quarter: 2021Q1

REPORT INFORMATION
  Report Type: Spontaneous
  Country: US (occurrence: US)
  Receive Date: 20210214
  Receipt Date: 20210214
  Transmission Date: 20210420
  Serious: No
  Sender: FDA-Public Use
  Company Number: US-009507513-2102USA004085

PATIENT

DRUGS (1)
  1. HYZAAR [Suspect]
     Active Substance: HYDROCHLOROTHIAZIDE\LOSARTAN POTASSIUM
     Indication: HYPERTENSION
     Dosage: 1 DOSAGE FORM, QD
     Route: 048
     Dates: start: 20200911, end: 20201003

REACTIONS (3)
  - Dizziness [Unknown]
  - Blood creatinine increased [Recovered/Resolved with Sequelae]
  - Vomiting [Unknown]

NARRATIVE: CASE EVENT DATE: 20200921
